FAERS Safety Report 6273953-7 (Version None)
Quarter: 2009Q3

REPORT INFORMATION
  Report Type: 
  Country: None (occurrence: None)
  Receive Date: 20090720
  Receipt Date: 20070726
  Transmission Date: 20100115
  Serious: Yes (Hospitalization, Other)
  Sender: FDA-Public Use
  Company Number: US-ASTRAZENECA-2006UW23955

PATIENT
  Age: 13961 Day
  Sex: Female
  Weight: 150.6 kg

DRUGS (29)
  1. SEROQUEL [Suspect]
     Indication: SCHIZOPHRENIA
     Route: 048
  2. SEROQUEL [Suspect]
     Indication: MENTAL DISORDER
     Route: 048
  3. SEROQUEL [Suspect]
     Route: 048
     Dates: start: 20001006
  4. SEROQUEL [Suspect]
     Route: 048
     Dates: start: 20001006
  5. SEROQUEL [Suspect]
     Route: 048
     Dates: start: 20010217
  6. SEROQUEL [Suspect]
     Route: 048
     Dates: start: 20010217
  7. ZYPREXA [Suspect]
     Dosage: 10 MG, 3 AT NIGHT.
     Dates: start: 19991012
  8. NAVANE [Concomitant]
  9. RISPERDAL [Concomitant]
  10. THORAZINE [Concomitant]
  11. TRILAFON [Concomitant]
  12. LASIX [Concomitant]
     Dosage: 20 MG TO 240 MG
     Route: 048
     Dates: start: 19970321
  13. CLOZARIL [Concomitant]
     Indication: HALLUCINATION
     Dosage: 25 MG TO 800 MG
     Dates: start: 20020409
  14. CELEXA [Concomitant]
     Dosage: 20 MG TO 60 MG
     Dates: start: 20051229
  15. TRAZODONE [Concomitant]
     Indication: INSOMNIA
     Dosage: 50 MG TO 400 MG
     Dates: start: 19970416
  16. ATIVAN [Concomitant]
     Indication: ANXIETY
     Dosage: 1 MG TO 2 MG
     Dates: start: 20001103
  17. EFFEXOR [Concomitant]
     Dosage: 75 MG TO 225 MG
     Route: 048
     Dates: start: 19970715
  18. COGENTIN [Concomitant]
     Dosage: 1 MG TO  2 MG
     Dates: start: 20020610
  19. ACCUPRIL [Concomitant]
     Dates: start: 20020423
  20. GEODON [Concomitant]
     Dosage: 80 MG TO 160 MG
     Dates: start: 20010529
  21. HALDOL [Concomitant]
     Dosage: 2 MG TO 10 MG
     Dates: start: 19970312
  22. PAXIL [Concomitant]
     Dosage: 15 MG TO 60 MG
     Dates: start: 19970407
  23. PREMARIN [Concomitant]
     Dosage: 0.625 MG TO 11.25 MG
     Dates: start: 19970416
  24. TEGRETOL [Concomitant]
     Dosage: 300MG TO 500MG
     Dates: start: 20051229
  25. ASPIRIN [Concomitant]
     Dates: start: 20070718
  26. IPRATROPIUM BROMIDE [Concomitant]
     Dosage: 0.5MG/2.5ML
     Dates: start: 20030321
  27. RIFAMPIN [Concomitant]
     Dates: start: 20070721
  28. POTASSIUM CHLORIDE [Concomitant]
     Dates: start: 20050816
  29. LISINOPRIL [Concomitant]
     Dates: start: 20050805

REACTIONS (7)
  - DIABETES MELLITUS [None]
  - DIABETES MELLITUS INADEQUATE CONTROL [None]
  - DIABETIC FOOT [None]
  - HYPOGLYCAEMIA [None]
  - NEUROPATHIC ARTHROPATHY [None]
  - NEUROPATHY PERIPHERAL [None]
  - WOUND [None]
